FAERS Safety Report 12500844 (Version 1)
Quarter: 2016Q2

REPORT INFORMATION
  Report Type: Spontaneous
  Country: US (occurrence: US)
  Receive Date: 20160627
  Receipt Date: 20160627
  Transmission Date: 20160815
  Serious: No
  Sender: FDA-Public Use
  Company Number: US-009507513-1606USA006407

PATIENT
  Age: 57 Year
  Sex: Female

DRUGS (4)
  1. FORADIL [Suspect]
     Active Substance: FORMOTEROL FUMARATE
     Dosage: UNK
     Dates: start: 2006
  2. SYMBICORT [Suspect]
     Active Substance: BUDESONIDE\FORMOTEROL FUMARATE DIHYDRATE
     Dosage: UNK
     Dates: start: 2006, end: 2007
  3. ASMANEX [Suspect]
     Active Substance: MOMETASONE FUROATE
     Indication: ASTHMA
     Dosage: UNK
     Route: 055
  4. FORADIL [Suspect]
     Active Substance: FORMOTEROL FUMARATE
     Dosage: UNK

REACTIONS (4)
  - Fear [Recovering/Resolving]
  - Lung disorder [Recovering/Resolving]
  - Adverse drug reaction [Recovering/Resolving]
  - Drug ineffective [Unknown]
